FAERS Safety Report 10261542 (Version 7)
Quarter: 2014Q4

REPORT INFORMATION
  Report Type: Report from Study
  Country: ZA (occurrence: ZA)
  Receive Date: 20140626
  Receipt Date: 20141226
  Transmission Date: 20150528
  Serious: No
  Sender: FDA-Public Use
  Company Number: PHHY2013ZA122701

PATIENT
  Age: 78 Year
  Sex: Female

DRUGS (4)
  1. ACLASTA [Suspect]
     Active Substance: ZOLEDRONIC ACID
     Indication: OSTEOPOROSIS
     Dosage: 5 MG, UNK
     Route: 042
     Dates: start: 20121026, end: 20121026
  2. RAYZON [Concomitant]
     Indication: PRODUCT USED FOR UNKNOWN INDICATION
     Dosage: 40 MG, QD
     Route: 065
     Dates: start: 20131130
  3. ACLASTA [Suspect]
     Active Substance: ZOLEDRONIC ACID
     Dosage: 5 MG, UNK
     Route: 042
     Dates: start: 20131026, end: 20131026
  4. CITALOPRAM [Concomitant]
     Active Substance: CITALOPRAM HYDROBROMIDE
     Indication: PRODUCT USED FOR UNKNOWN INDICATION
     Dosage: 40 MG, PER DAY
     Route: 065
     Dates: start: 20131119

REACTIONS (15)
  - Ischaemia [Unknown]
  - Back pain [Recovering/Resolving]
  - Vertigo [Recovered/Resolved]
  - Bursitis [Recovered/Resolved]
  - Chondrocalcinosis pyrophosphate [Not Recovered/Not Resolved]
  - Haemorrhoids [Recovered/Resolved]
  - Cardiovascular disorder [Unknown]
  - Meniscus injury [Recovered/Resolved]
  - Angina pectoris [Recovered/Resolved]
  - Depression [Recovering/Resolving]
  - Cystitis [Recovered/Resolved]
  - Tendonitis [Recovered/Resolved]
  - Contusion [Recovered/Resolved]
  - Vitamin B12 deficiency [Not Recovered/Not Resolved]
  - Irritable bowel syndrome [Recovered/Resolved]

NARRATIVE: CASE EVENT DATE: 20121108
